FAERS Safety Report 24015011 (Version 1)
Quarter: 2024Q2

REPORT INFORMATION
  Report Type: Spontaneous
  Country: IR (occurrence: IR)
  Receive Date: 20240626
  Receipt Date: 20240626
  Transmission Date: 20240716
  Serious: Yes (Hospitalization)
  Sender: FDA-Public Use
  Company Number: IR-RDY-LIT/IRN/24/0009277

PATIENT
  Age: 37 Week
  Sex: Female
  Weight: 2.19 kg

DRUGS (1)
  1. ACYCLOVIR [Suspect]
     Active Substance: ACYCLOVIR
     Indication: Product used for unknown indication
     Route: 041

REACTIONS (4)
  - Catheter site discolouration [Unknown]
  - Catheter site swelling [Unknown]
  - Catheter site induration [Unknown]
  - Catheter site extravasation [Unknown]
